FAERS Safety Report 17044403 (Version 1)
Quarter: 2019Q4

REPORT INFORMATION
  Report Type: Spontaneous
  Country: US (occurrence: US)
  Receive Date: 20191116
  Receipt Date: 20191116
  Transmission Date: 20200122
  Serious: No
  Sender: FDA-Public Use
  Company Number: None

PATIENT
  Age: 33 Year
  Sex: Female
  Weight: 61.65 kg

DRUGS (5)
  1. B12 5000MCG SUBLINGUAL [Concomitant]
  2. D3 4000 UNITS PER DAY [Concomitant]
  3. LAYOLIS FE [Concomitant]
     Active Substance: ETHINYL ESTRADIOL\NORETHINDRONE
  4. MELATONIN 10-20MG AS NEEDED [Concomitant]
  5. OCREVUS [Suspect]
     Active Substance: OCRELIZUMAB
     Indication: MULTIPLE SCLEROSIS
     Dosage: ?          QUANTITY:600 MG, INTRAVENOUS;OTHER FREQUENCY:EVERY 24 WEEKS;?
     Route: 042
     Dates: start: 20191108, end: 20191108

REACTIONS (2)
  - Rash [None]
  - Acne [None]

NARRATIVE: CASE EVENT DATE: 20191108
